FAERS Safety Report 13802546 (Version 1)
Quarter: 2017Q3

REPORT INFORMATION
  Report Type: Spontaneous
  Country: US (occurrence: US)
  Receive Date: 20170727
  Receipt Date: 20170727
  Transmission Date: 20171127
  Serious: No
  Sender: FDA-Public Use
  Company Number: None

PATIENT
  Age: 60 Year
  Sex: Male

DRUGS (4)
  1. VANCOMYCIN [Suspect]
     Active Substance: VANCOMYCIN
     Indication: SOFT TISSUE INFECTION
     Route: 042
     Dates: start: 20170712, end: 20170721
  2. RIFAMPIN 300 MG UNKNOWN [Suspect]
     Active Substance: RIFAMPIN
     Indication: SKIN INFECTION
     Route: 048
     Dates: start: 20170712, end: 20170721
  3. RIFAMPIN 300 MG UNKNOWN [Suspect]
     Active Substance: RIFAMPIN
     Indication: SOFT TISSUE INFECTION
     Route: 048
     Dates: start: 20170712, end: 20170721
  4. VANCOMYCIN [Suspect]
     Active Substance: VANCOMYCIN
     Indication: SKIN INFECTION
     Route: 042
     Dates: start: 20170712, end: 20170721

REACTIONS (7)
  - Thrombocytopenia [None]
  - Rash [None]
  - Hip fracture [None]
  - Haematochezia [None]
  - Gingival bleeding [None]
  - Oral mucosa haematoma [None]
  - Tongue haematoma [None]

NARRATIVE: CASE EVENT DATE: 20170716
